FAERS Safety Report 22206151 (Version 5)
Quarter: 2024Q4

REPORT INFORMATION
  Report Type: Spontaneous
  Country: JP (occurrence: JP)
  Receive Date: 20230413
  Receipt Date: 20241211
  Transmission Date: 20250114
  Serious: Yes (Other)
  Sender: BIOGEN
  Company Number: JP-BIOGEN-2023BI01197982

PATIENT
  Age: 50 Year
  Sex: Female

DRUGS (1)
  1. TYSABRI [Suspect]
     Active Substance: NATALIZUMAB
     Indication: Relapsing-remitting multiple sclerosis
     Route: 050
     Dates: start: 20180606

REACTIONS (1)
  - Ovarian cancer [Unknown]

NARRATIVE: CASE EVENT DATE: 20230101
